FAERS Safety Report 8294144-4 (Version None)
Quarter: 2012Q2

REPORT INFORMATION
  Report Type: 
  Country: None (occurrence: None)
  Receive Date: 20120418
  Receipt Date: 20120411
  Transmission Date: 20120825
  Serious: Yes (Other)
  Sender: FDA-Public Use
  Company Number: PHHY2012NO026245

PATIENT
  Age: 64 Year
  Sex: Female

DRUGS (10)
  1. PANTOPRAZOLE [Concomitant]
     Indication: PROPHYLAXIS AGAINST GASTROINTESTINAL ULCER
     Dosage: UNK UKN, UNK
  2. KEPPRA [Concomitant]
     Indication: EPILEPSY
     Dosage: UNK UKN, UNK
  3. SIMVASTATIN [Concomitant]
     Dosage: UNK UKN, UNK
  4. KEPPRA [Concomitant]
     Route: 048
  5. IRBESARTAN [Concomitant]
     Indication: HYPERTENSION
     Dosage: UNK UKN, UNK
  6. LEVOTHYROXINE SODIUM [Concomitant]
     Route: 048
  7. ZOLEDRONOC ACID [Suspect]
     Indication: OSTEOPOROSIS
     Dosage: UNK UKN, UNK
     Route: 042
     Dates: start: 20120228
  8. IRBESARTAN [Concomitant]
     Route: 048
  9. LEVOTHYROXINE SODIUM [Concomitant]
     Indication: HYPOTHYROIDISM
     Dosage: UNK UKN, UNK
  10. PANTOPRAZOLE [Concomitant]
     Route: 048

REACTIONS (22)
  - NYSTAGMUS [None]
  - MALAISE [None]
  - DIARRHOEA [None]
  - ANXIETY [None]
  - BACK PAIN [None]
  - INFLUENZA LIKE ILLNESS [None]
  - ARTHRALGIA [None]
  - PAIN [None]
  - EMOTIONAL DISTRESS [None]
  - QUALITY OF LIFE DECREASED [None]
  - JOINT SWELLING [None]
  - GINGIVAL DISORDER [None]
  - MUSCLE SPASMS [None]
  - DEPRESSION [None]
  - FEELING ABNORMAL [None]
  - SYNOVITIS [None]
  - HEADACHE [None]
  - PYREXIA [None]
  - OEDEMA PERIPHERAL [None]
  - DRY MOUTH [None]
  - ARTHRITIS INFECTIVE [None]
  - MYALGIA [None]
